FAERS Safety Report 11394673 (Version 2)
Quarter: 2015Q3

REPORT INFORMATION
  Report Type: Spontaneous
  Country: US (occurrence: US)
  Receive Date: 20150819
  Receipt Date: 20150921
  Transmission Date: 20151125
  Serious: Yes (Other)
  Sender: FDA-Public Use
  Company Number: US-ROCHE-1623088

PATIENT
  Age: 50 Year
  Sex: Female

DRUGS (10)
  1. PANTOPRAZOLE [Concomitant]
     Active Substance: PANTOPRAZOLE SODIUM
     Indication: GASTROOESOPHAGEAL REFLUX DISEASE
     Route: 048
  2. XOLAIR [Suspect]
     Active Substance: OMALIZUMAB
     Indication: ASTHMA
     Route: 058
     Dates: start: 20150727
  3. MONTELUKAST [Concomitant]
     Active Substance: MONTELUKAST SODIUM
     Indication: ASTHMA
     Route: 048
  4. DULERA [Concomitant]
     Active Substance: FORMOTEROL FUMARATE DIHYDRATE\MOMETASONE FUROATE
     Indication: ASTHMA
     Dosage: 2 PUFFS BID, 200/5
     Route: 055
  5. ATROVENT [Concomitant]
     Active Substance: IPRATROPIUM BROMIDE
     Indication: RHINITIS ALLERGIC
     Dosage: 2 SPRAYS PER NOSTRIL TID, AS NEEDED
     Route: 045
  6. GUAIFENESIN. [Concomitant]
     Active Substance: GUAIFENESIN
     Indication: RHINITIS ALLERGIC
     Dosage: AS NEEDED
     Route: 048
  7. METFORMIN [Concomitant]
     Active Substance: METFORMIN HYDROCHLORIDE
     Indication: DIABETES MELLITUS
     Route: 048
  8. SOLIFENACIN [Concomitant]
     Active Substance: SOLIFENACIN
     Route: 048
  9. FLUNISOLIDE. [Concomitant]
     Active Substance: FLUNISOLIDE
     Indication: RHINITIS ALLERGIC
     Dosage: 2 SPRAYS PER NOSTRIL
     Route: 045
  10. CHLORPHENIRAMINE. [Concomitant]
     Active Substance: CHLORPHENIRAMINE
     Indication: RHINITIS ALLERGIC
     Dosage: AS NEEDED
     Route: 048

REACTIONS (2)
  - Upper-airway cough syndrome [Unknown]
  - Anaphylactic reaction [Unknown]

NARRATIVE: CASE EVENT DATE: 20150729
